FAERS Safety Report 4941483-8 (Version None)
Quarter: 2006Q1

REPORT INFORMATION
  Report Type: 
  Country: None (occurrence: None)
  Receive Date: 20060308
  Receipt Date: 20060222
  Transmission Date: 20060701
  Serious: Yes (Other)
  Sender: FDA-Public Use
  Company Number: 2006024520

PATIENT
  Age: 45 Year
  Sex: Male

DRUGS (3)
  1. ATORVASTATIN CALCIUM [Suspect]
     Indication: DYSLIPIDAEMIA
     Dosage: 10 MG (10 MG, 1 IN 1 D), ORAL
     Route: 048
     Dates: start: 20030101
  2. LIPITOR [Suspect]
     Indication: ILL-DEFINED DISORDER
     Dosage: 10 MG (10 MG, 1 IN 1 D),
     Dates: start: 20051201, end: 20060111
  3. DRUG, (DRUG,) [Concomitant]

REACTIONS (4)
  - ERYTHEMA [None]
  - FACE OEDEMA [None]
  - PAIN IN EXTREMITY [None]
  - SPEECH DISORDER [None]
